FAERS Safety Report 17219035 (Version 1)
Quarter: 2020Q1

REPORT INFORMATION
  Report Type: Spontaneous
  Country: US (occurrence: US)
  Receive Date: 20191230
  Receipt Date: 20191230
  Transmission Date: 20200409
  Serious: No
  Sender: FDA-Public Use
  Company Number: None

PATIENT
  Age: 28 Year
  Sex: Female
  Weight: 66.2 kg

DRUGS (1)
  1. TYSABRI [Suspect]
     Active Substance: NATALIZUMAB
     Indication: MULTIPLE SCLEROSIS
     Dosage: ?          OTHER FREQUENCY:EVERY MONTH;?
     Route: 042

REACTIONS (10)
  - Sputum increased [None]
  - Somnolence [None]
  - Pain of skin [None]
  - Lymphadenopathy [None]
  - Ill-defined disorder [None]
  - Throat irritation [None]
  - Infusion related reaction [None]
  - Chills [None]
  - Cough [None]
  - Paraesthesia [None]

NARRATIVE: CASE EVENT DATE: 20191228
